FAERS Safety Report 18474816 (Version 1)
Quarter: 2020Q4

REPORT INFORMATION
  Report Type: Spontaneous
  Country: US (occurrence: US)
  Receive Date: 20201106
  Receipt Date: 20201106
  Transmission Date: 20210114
  Serious: No
  Sender: FDA-Public Use
  Company Number: US-VERTEX PHARMACEUTICALS-2020-019702

PATIENT
  Sex: Female
  Weight: 94 kg

DRUGS (4)
  1. HUMALIN [Concomitant]
     Active Substance: INSULIN NOS
     Dosage: UNK, BID
     Route: 058
  2. CAYSTON [Concomitant]
     Active Substance: AZTREONAM
     Dosage: 75 MG, TID
     Route: 055
  3. TRIKAFTA [Suspect]
     Active Substance: ELEXACAFTOR\IVACAFTOR\TEZACAFTOR
     Indication: CYSTIC FIBROSIS
     Dosage: 2 TABS (100 MG ELEXACAFTOR/ 50 MG TEZACAFTOR/ 75 MG IVACAFTOR) AM AND 1 TAB (150MG IVACAFTOR) PM
     Route: 048
     Dates: start: 20191206
  4. ZYVOX [Concomitant]
     Active Substance: LINEZOLID
     Dosage: UNK, BID
     Route: 042

REACTIONS (4)
  - Increased tendency to bruise [Unknown]
  - Gastrointestinal disorder [Recovered/Resolved]
  - Productive cough [Unknown]
  - Infection [Not Recovered/Not Resolved]

NARRATIVE: CASE EVENT DATE: 2020
